FAERS Safety Report 9282103 (Version 2)
Quarter: 2016Q4

REPORT INFORMATION
  Report Type: Report from Study
  Country: TW (occurrence: TW)
  Receive Date: 20130510
  Receipt Date: 20161122
  Transmission Date: 20170207
  Serious: Yes (Death, Hospitalization)
  Sender: FDA-Public Use
  Company Number: TW-ROCHE-1223219

PATIENT
  Age: 67 Year
  Sex: Male
  Weight: 70 kg

DRUGS (8)
  1. FUROSEMIDE. [Concomitant]
     Active Substance: FUROSEMIDE
     Indication: OEDEMA
     Route: 048
     Dates: start: 20130307, end: 20130320
  2. BEVACIZUMAB [Suspect]
     Active Substance: BEVACIZUMAB
     Indication: COLORECTAL CANCER METASTATIC
     Route: 042
     Dates: start: 20121207, end: 20130222
  3. BISMUTH SUBCARBONATE. [Concomitant]
     Active Substance: BISMUTH SUBCARBONATE
     Indication: DIARRHOEA
     Route: 048
     Dates: start: 20130312, end: 20130322
  4. ANTREX [Suspect]
     Active Substance: LEUCOVORIN CALCIUM
     Indication: COLORECTAL CANCER METASTATIC
     Route: 042
     Dates: start: 20121207, end: 20130715
  5. FLUOROURACIL. [Suspect]
     Active Substance: FLUOROURACIL
     Indication: COLORECTAL CANCER METASTATIC
     Route: 042
     Dates: start: 20121207, end: 20130222
  6. IRINOTECAN [Suspect]
     Active Substance: IRINOTECAN
     Indication: COLORECTAL CANCER METASTATIC
     Route: 042
     Dates: start: 20121207, end: 20130222
  7. ALPRAZOLAM. [Concomitant]
     Active Substance: ALPRAZOLAM
     Indication: PROPHYLAXIS
     Dosage: EVERY NIGHT
     Route: 048
  8. ZOLPIDEM TARTRATE. [Concomitant]
     Active Substance: ZOLPIDEM TARTRATE
     Indication: INSOMNIA
     Dosage: EVERY NIGHT
     Route: 048
     Dates: end: 20130322

REACTIONS (4)
  - Sepsis [Fatal]
  - Necrotising fasciitis [Not Recovered/Not Resolved]
  - Oedema [None]
  - Escherichia test positive [None]

NARRATIVE: CASE EVENT DATE: 20130310
